FAERS Safety Report 24334138 (Version 1)
Quarter: 2024Q3

REPORT INFORMATION
  Report Type: Spontaneous
  Country: ES (occurrence: ES)
  Receive Date: 20240918
  Receipt Date: 20240918
  Transmission Date: 20241017
  Serious: Yes (Other)
  Sender: ALCON
  Company Number: ES-Santen Oy-2024-ESP-009851

PATIENT

DRUGS (1)
  1. LATANOPROST\NETARSUDIL MESYLATE [Suspect]
     Active Substance: LATANOPROST\NETARSUDIL MESYLATE
     Indication: Normal tension glaucoma
     Dosage: UNK
     Route: 047
     Dates: start: 2024, end: 2024

REACTIONS (5)
  - Corneal endothelial cell loss [Not Recovered/Not Resolved]
  - Therapeutic response unexpected [Unknown]
  - Visual impairment [Not Recovered/Not Resolved]
  - Corneal oedema [Not Recovered/Not Resolved]
  - Corneal disorder [Not Recovered/Not Resolved]

NARRATIVE: CASE EVENT DATE: 20240101
